FAERS Safety Report 6275500-2 (Version None)
Quarter: 2009Q3

REPORT INFORMATION
  Report Type: 
  Country: None (occurrence: None)
  Receive Date: 20090721
  Receipt Date: 20090716
  Transmission Date: 20100115
  Serious: Yes (Death)
  Sender: FDA-Public Use
  Company Number: JP-GENENTECH-279716

PATIENT
  Age: 81 Year
  Sex: Male

DRUGS (5)
  1. RITUXAN [Suspect]
     Indication: LYMPHOMA
     Route: 065
  2. CYCLOPHOSPHAMIDE [Concomitant]
     Indication: LYMPHOMA
  3. VINCRISTINE SULFATE [Concomitant]
     Indication: LYMPHOMA
  4. PREDNISOLONE [Concomitant]
     Indication: LYMPHOMA
  5. DOXORUBICIN HCL [Concomitant]
     Indication: DIFFUSE LARGE B-CELL LYMPHOMA

REACTIONS (3)
  - CYTOMEGALOVIRUS VIRAEMIA [None]
  - PARVOVIRUS INFECTION [None]
  - PNEUMOCYSTIS JIROVECI PNEUMONIA [None]
